FAERS Safety Report 8106588-1 (Version None)
Quarter: 2012Q1

REPORT INFORMATION
  Report Type: 
  Country: None (occurrence: None)
  Receive Date: 20120130
  Receipt Date: 20120120
  Transmission Date: 20120608
  Serious: Yes (Hospitalization)
  Sender: FDA-Public Use
  Company Number: 2012SP003575

PATIENT
  Age: 56 Year
  Sex: Male
  Weight: 102 kg

DRUGS (1)
  1. INTRON A [Suspect]
     Indication: MALIGNANT MELANOMA
     Dosage: 9 MIU;QW;SC
     Route: 058
     Dates: start: 20111003, end: 20111111

REACTIONS (3)
  - ANAEMIA HAEMOLYTIC AUTOIMMUNE [None]
  - PAIN [None]
  - GASTRIC DISORDER [None]
